FAERS Safety Report 25658820 (Version 1)
Quarter: 2025Q3

REPORT INFORMATION
  Report Type: Spontaneous
  Country: US (occurrence: US)
  Receive Date: 20250808
  Receipt Date: 20250808
  Transmission Date: 20251020
  Serious: Yes (Hospitalization, Other)
  Sender: NOVITIUM PHARMA
  Company Number: US-NOVITIUMPHARMA-2025USNVP01970

PATIENT
  Age: 69 Year
  Sex: Male

DRUGS (9)
  1. PREDNISONE [Suspect]
     Active Substance: PREDNISONE
     Indication: Immunosuppressant drug therapy
  2. SULFAMETHOXAZOLE\TRIMETHOPRIM [Suspect]
     Active Substance: SULFAMETHOXAZOLE\TRIMETHOPRIM
     Indication: Infection prophylaxis
  3. MYCOPHENOLATE MOFETIL [Concomitant]
     Active Substance: MYCOPHENOLATE MOFETIL
     Indication: Immunosuppressant drug therapy
  4. TACROLIMUS [Concomitant]
     Active Substance: TACROLIMUS
     Indication: Immunosuppressant drug therapy
  5. TACROLIMUS [Concomitant]
     Active Substance: TACROLIMUS
  6. TACROLIMUS [Concomitant]
     Active Substance: TACROLIMUS
  7. ATOVAQUONE [Concomitant]
     Active Substance: ATOVAQUONE
     Indication: Infection prophylaxis
  8. SIROLIMUS [Concomitant]
     Active Substance: SIROLIMUS
     Indication: Immunosuppressant drug therapy
  9. ISAVUCONAZONIUM [Concomitant]
     Active Substance: ISAVUCONAZONIUM
     Indication: Infection prophylaxis

REACTIONS (3)
  - Human herpesvirus 8 infection [Recovering/Resolving]
  - Kaposi^s sarcoma [Recovering/Resolving]
  - Hyperkalaemia [Unknown]
